FAERS Safety Report 7025727-7 (Version None)
Quarter: 2010Q4

REPORT INFORMATION
  Report Type: 
  Country: None (occurrence: None)
  Receive Date: 20101004
  Receipt Date: 20100923
  Transmission Date: 20110411
  Serious: Yes (Other)
  Sender: FDA-Public Use
  Company Number: US-BIOGENIDEC-2010BI033227

PATIENT
  Age: 44 Year
  Sex: Male
  Weight: 113 kg

DRUGS (2)
  1. TYSABRI [Suspect]
     Indication: MULTIPLE SCLEROSIS
     Route: 042
     Dates: start: 20100503
  2. TEGRETOL [Concomitant]
     Indication: CONVULSION

REACTIONS (2)
  - CONVULSION [None]
  - MULTIPLE SCLEROSIS RELAPSE [None]
